FAERS Safety Report 17424135 (Version 5)
Quarter: 2020Q4

REPORT INFORMATION
  Report Type: Spontaneous
  Country: FR (occurrence: FR)
  Receive Date: 20200217
  Receipt Date: 20201216
  Transmission Date: 20210113
  Serious: Yes (Death, Other)
  Sender: FDA-Public Use
  Company Number: FR-ORION CORPORATION ORION PHARMA-20_00008461

PATIENT
  Age: 78 Year
  Sex: Female
  Weight: 90 kg

DRUGS (6)
  1. SPECIAFOLDINE [Suspect]
     Active Substance: FOLIC ACID
     Indication: VITAMIN SUPPLEMENTATION
     Dosage: STRENGTH: 5 MG
     Route: 048
     Dates: start: 201907, end: 20191218
  2. OPDIVO [Suspect]
     Active Substance: NIVOLUMAB
     Indication: METASTATIC MALIGNANT MELANOMA
     Dosage: STRENGTH: 10MG/ML
     Route: 042
     Dates: start: 20190206
  3. IMETH [Suspect]
     Active Substance: METHOTREXATE SODIUM
     Indication: POLYARTHRITIS
     Route: 048
     Dates: start: 20190709, end: 20191218
  4. TRAMADOL BASE [Concomitant]
     Active Substance: TRAMADOL
     Indication: PAIN
     Dosage: UNKNOWN
     Route: 048
     Dates: start: 20191023
  5. HYDROCORTANCYL [Concomitant]
     Active Substance: PREDNISONE
     Indication: ARTHRALGIA
     Dosage: 2.5 PERCENT
     Route: 014
     Dates: start: 20190926, end: 20190926
  6. PREDNISONE. [Suspect]
     Active Substance: PREDNISONE
     Indication: POLYARTHRITIS
     Dosage: 10MG /DAY THEN 1MG /WEEK FROM 09/7
     Route: 048
     Dates: start: 20190522, end: 201910

REACTIONS (1)
  - Metastatic malignant melanoma [Fatal]

NARRATIVE: CASE EVENT DATE: 20191211
